FAERS Safety Report 16361668 (Version 2)
Quarter: 2019Q2

REPORT INFORMATION
  Report Type: Spontaneous
  Country: US (occurrence: US)
  Receive Date: 20190528
  Receipt Date: 20190531
  Transmission Date: 20190711
  Serious: Yes (Death, Hospitalization, Other)
  Sender: FDA-Public Use
  Company Number: US-ASTELLAS-2019US007115

PATIENT
  Age: 27 Year
  Sex: Female

DRUGS (1)
  1. TACROLIMUS. [Suspect]
     Active Substance: TACROLIMUS
     Indication: PRODUCT USED FOR UNKNOWN INDICATION
     Dosage: UNK UNK, UNKNOWN FREQ.
     Route: 065

REACTIONS (21)
  - Diarrhoea [Unknown]
  - Constipation [Unknown]
  - Vomiting [Unknown]
  - Dehydration [Unknown]
  - Treatment noncompliance [Unknown]
  - Skin necrosis [Unknown]
  - Septic shock [Unknown]
  - General physical health deterioration [Unknown]
  - Abdominal pain [Unknown]
  - Asthenia [Unknown]
  - Transplant rejection [Unknown]
  - Intestinal ischaemia [Fatal]
  - Blood creatinine increased [Recovering/Resolving]
  - Chronic kidney disease [Unknown]
  - Skin graft rejection [Unknown]
  - Infection [Unknown]
  - Renal disorder [Unknown]
  - Pain [Unknown]
  - Blister [Unknown]
  - Gastric disorder [Not Recovered/Not Resolved]
  - Pain in extremity [Unknown]

NARRATIVE: CASE EVENT DATE: 2004
